FAERS Safety Report 18509047 (Version 3)
Quarter: 2020Q4

REPORT INFORMATION
  Report Type: Spontaneous
  Country: SE (occurrence: SE)
  Receive Date: 20201117
  Receipt Date: 20201211
  Transmission Date: 20210114
  Serious: Yes (Disabling, Other)
  Sender: FDA-Public Use
  Company Number: SE-AUROBINDO-AUR-APL-2020-055894

PATIENT
  Age: 55 Year
  Sex: Female

DRUGS (1)
  1. ALENDRONATE AUROBINDO 70 MG TABLETS [Suspect]
     Active Substance: ALENDRONIC ACID
     Indication: FOOT FRACTURE
     Dosage: UNK, EVERY WEEK
     Route: 065
     Dates: start: 201902, end: 202006

REACTIONS (9)
  - Swelling [Recovering/Resolving]
  - Gait disturbance [Recovering/Resolving]
  - Walking aid user [Recovering/Resolving]
  - Deafness [Recovering/Resolving]
  - Fatigue [Recovering/Resolving]
  - Balance disorder [Recovering/Resolving]
  - Hypoacusis [Recovering/Resolving]
  - Lower limb fracture [Recovering/Resolving]
  - Pain in extremity [Recovering/Resolving]

NARRATIVE: CASE EVENT DATE: 201908
